FAERS Safety Report 19761946 (Version 3)
Quarter: 2021Q3

REPORT INFORMATION
  Report Type: Report from Study
  Country: CO (occurrence: CO)
  Receive Date: 20210827
  Receipt Date: 20210922
  Transmission Date: 20211014
  Serious: Yes (Hospitalization, Other)
  Sender: FDA-Public Use
  Company Number: CO-TAKEDA-2021TUS038649

PATIENT
  Age: 28 Year
  Sex: Male
  Weight: 44 kg

DRUGS (1)
  1. HUMAN IMMUNOGLOBULIN; HYALURONIDASE [Suspect]
     Active Substance: HUMAN IMMUNOGLOBULIN G\HYALURONIDASE RECOMBINANT HUMAN
     Indication: PRIMARY IMMUNODEFICIENCY SYNDROME
     Dosage: 30 GRAM, MONTHLY
     Route: 058
     Dates: start: 20200611

REACTIONS (7)
  - Pneumonia [Recovering/Resolving]
  - Oral disorder [Recovering/Resolving]
  - Weight increased [Unknown]
  - Oropharyngeal pain [Recovering/Resolving]
  - Pulmonary mass [Not Recovered/Not Resolved]
  - Malaise [Recovering/Resolving]
  - Headache [Recovering/Resolving]

NARRATIVE: CASE EVENT DATE: 20210610
